FAERS Safety Report 15592339 (Version 2)
Quarter: 2018Q4

REPORT INFORMATION
  Report Type: Spontaneous
  Country: US (occurrence: US)
  Receive Date: 20181106
  Receipt Date: 20181123
  Transmission Date: 20190205
  Serious: No
  Sender: FDA-Public Use
  Company Number: US-ELI_LILLY_AND_COMPANY-US201810014687

PATIENT
  Age: 76 Year
  Sex: Female
  Weight: 64 kg

DRUGS (7)
  1. LASIX HIGH DOSE [Concomitant]
     Indication: OEDEMA PERIPHERAL
     Dosage: 40 DF, UNK
     Route: 048
  2. METOPROLOL. [Concomitant]
     Active Substance: METOPROLOL
     Indication: HYPERTENSION
     Dosage: 25 DF, UNK
     Route: 048
  3. ADCIRCA [Suspect]
     Active Substance: TADALAFIL
     Indication: COR PULMONALE
     Dosage: 20 MG, DAILY
     Route: 065
     Dates: start: 20180807
  4. ATORVASTATIN [Concomitant]
     Active Substance: ATORVASTATIN
     Indication: HYPERLIPIDAEMIA
     Dosage: 80 DF, UNK
     Route: 048
  5. ASPIRIN ANALGESIC [Concomitant]
     Indication: PULMONARY ARTERIAL HYPERTENSION
     Dosage: 80 DF, UNK
     Route: 048
  6. AMBRISENTAN [Suspect]
     Active Substance: AMBRISENTAN
     Indication: COR PULMONALE
     Dosage: 5 MG, DAILY
     Route: 065
     Dates: start: 20180807
  7. AMLODIPINE [Concomitant]
     Active Substance: AMLODIPINE BESYLATE
     Indication: HYPERTENSION
     Dosage: 2.5 DF, UNKNOWN
     Route: 048

REACTIONS (2)
  - Hypoacusis [Unknown]
  - Nasal congestion [Unknown]

NARRATIVE: CASE EVENT DATE: 20181022
